FAERS Safety Report 14301156 (Version 1)
Quarter: 2017Q4

REPORT INFORMATION
  Report Type: Spontaneous
  Country: NL (occurrence: NL)
  Receive Date: 20171219
  Receipt Date: 20171219
  Transmission Date: 20180321
  Serious: Yes (Life-Threatening)
  Sender: FDA-Public Use
  Company Number: NL-TEVA-2017-NL-835932

PATIENT
  Age: 49 Year
  Sex: Male
  Weight: 100 kg

DRUGS (6)
  1. SPIRONOLACTON 12,5MG [Concomitant]
     Dosage: 1DD 12,5MG
  2. METFORMINE TABLET, 1000 MG (MILLIGRAM) [Suspect]
     Active Substance: METFORMIN HYDROCHLORIDE
     Indication: DIABETES MELLITUS
     Dosage: 3000 MILLIGRAM DAILY;
     Route: 065
     Dates: end: 20170710
  3. IRBESARTAN. [Concomitant]
     Active Substance: IRBESARTAN
     Dosage: 1 DD 150 MG
  4. FUROSEMIDE 40MG [Concomitant]
     Active Substance: FUROSEMIDE
     Dosage: 1DD 40MG
  5. METOPROLOL RET [Concomitant]
     Dosage: 1 DD 50 MG
  6. INSULINE [Concomitant]
     Active Substance: INSULIN NOS
     Dosage: 4 DD

REACTIONS (4)
  - Hyperkalaemia [Recovered/Resolved]
  - Dehydration [Recovered/Resolved]
  - Lactic acidosis [Recovered/Resolved]
  - Diarrhoea [Recovered/Resolved]

NARRATIVE: CASE EVENT DATE: 20170710
